FAERS Safety Report 7356095-9 (Version None)
Quarter: 2011Q1

REPORT INFORMATION
  Report Type: 
  Country: None (occurrence: None)
  Receive Date: 20110316
  Receipt Date: 20100914
  Transmission Date: 20110831
  Serious: Yes (Hospitalization)
  Sender: FDA-Public Use
  Company Number: US-BAYER-201019035NA

PATIENT
  Sex: Female

DRUGS (3)
  1. MOTRIN [Concomitant]
  2. YASMIN [Suspect]
     Dosage: UNK
     Route: 048
     Dates: start: 20051201
  3. YAZ [Suspect]
     Dosage: UNK
     Route: 048
     Dates: start: 20051201

REACTIONS (1)
  - PULMONARY EMBOLISM [None]
